FAERS Safety Report 23661658 (Version 1)
Quarter: 2024Q1

REPORT INFORMATION
  Report Type: Report from Study
  Country: BR (occurrence: BR)
  Receive Date: 20240322
  Receipt Date: 20240322
  Transmission Date: 20240410
  Serious: Yes (Hospitalization)
  Sender: FDA-Public Use
  Company Number: BR-JNJFOC-20240348036

PATIENT
  Age: 16 Year
  Sex: Male
  Weight: 45 kg

DRUGS (5)
  1. REMICADE [Suspect]
     Active Substance: INFLIXIMAB
     Indication: Crohn^s disease
     Route: 041
     Dates: start: 20231028
  2. REMICADE [Suspect]
     Active Substance: INFLIXIMAB
     Route: 041
     Dates: start: 202311
  3. REMICADE [Suspect]
     Active Substance: INFLIXIMAB
     Dosage: DOUBLE DOSE
     Route: 041
     Dates: start: 2023
  4. REMICADE [Suspect]
     Active Substance: INFLIXIMAB
     Dosage: FIRST DOSE AFTER SURGERY
     Route: 041
     Dates: start: 20240221
  5. REMICADE [Suspect]
     Active Substance: INFLIXIMAB
     Dosage: SECOND DOSE AFTER SURGERY
     Route: 041
     Dates: start: 20240306

REACTIONS (2)
  - Crohn^s disease [Recovering/Resolving]
  - Drug level decreased [Recovering/Resolving]

NARRATIVE: CASE EVENT DATE: 20231201
